FAERS Safety Report 25900389 (Version 2)
Quarter: 2025Q4

REPORT INFORMATION
  Report Type: Report from Study
  Country: US (occurrence: US)
  Receive Date: 20251009
  Receipt Date: 20251020
  Transmission Date: 20260118
  Serious: Yes (Hospitalization, Other)
  Sender: BAYER HEALTHCARE PHARMACEUTICALS INC.
  Company Number: US-BAYER-2025A087520

PATIENT
  Sex: Female

DRUGS (6)
  1. ADEMPAS [Suspect]
     Active Substance: RIOCIGUAT
     Indication: Pulmonary arterial hypertension
     Dosage: UNK
  2. ADEMPAS [Suspect]
     Active Substance: RIOCIGUAT
     Indication: Pulmonary arterial hypertension
     Dosage: 2.5 MG, TID
     Route: 048
     Dates: start: 202009
  3. SODIUM CHLORIDE [Concomitant]
     Active Substance: SODIUM CHLORIDE
  4. OPSUMIT [Concomitant]
     Active Substance: MACITENTAN
  5. VELETRI [Concomitant]
     Active Substance: EPOPROSTENOL
  6. TREPROSTINIL [Concomitant]
     Active Substance: TREPROSTINIL

REACTIONS (22)
  - Compression fracture [Recovering/Resolving]
  - Hospitalisation [None]
  - Autonomic nervous system imbalance [None]
  - Syncope [None]
  - Syncope [None]
  - Pain [None]
  - Respiration abnormal [None]
  - Decreased appetite [None]
  - Chest pain [None]
  - Fatigue [None]
  - Dizziness [None]
  - Nausea [None]
  - Diarrhoea [None]
  - Headache [None]
  - Dizziness [None]
  - Dizziness [None]
  - Headache [None]
  - Nausea [None]
  - Diarrhoea [None]
  - Pain in jaw [None]
  - Myalgia [None]
  - Arthralgia [None]
